FAERS Safety Report 21071612 (Version 1)
Quarter: 2022Q3

REPORT INFORMATION
  Report Type: Spontaneous
  Country: US (occurrence: US)
  Receive Date: 20220712
  Receipt Date: 20220712
  Transmission Date: 20221027
  Serious: No
  Sender: FDA-Public Use
  Company Number: US-PFIZER INC-202200944203

PATIENT
  Age: 74 Year
  Sex: Male
  Weight: 64.853 kg

DRUGS (1)
  1. PAXLOVID [Suspect]
     Active Substance: NIRMATRELVIR\RITONAVIR
     Indication: COVID-19 treatment
     Dosage: 3 DF, 2X/DAY (150-200MG AND 100MG, TAKES 3 TABLETS IN MORNING AND EVENING)
     Dates: start: 20220705

REACTIONS (4)
  - Neck pain [Recovering/Resolving]
  - Myalgia [Recovering/Resolving]
  - Arthralgia [Recovering/Resolving]
  - Sleep disorder due to general medical condition, insomnia type [Recovering/Resolving]

NARRATIVE: CASE EVENT DATE: 20220706
